FAERS Safety Report 26103383 (Version 1)
Quarter: 2025Q4

REPORT INFORMATION
  Report Type: Spontaneous
  Country: EU (occurrence: EU)
  Receive Date: 20251129
  Receipt Date: 20251129
  Transmission Date: 20260118
  Serious: Yes (Hospitalization, Other)
  Sender: AUROBINDO
  Company Number: EU-002147023-NVSC2025PT174901

PATIENT
  Age: 60 Year

DRUGS (12)
  1. ATORVASTATIN [Suspect]
     Active Substance: ATORVASTATIN
     Indication: Product used for unknown indication
     Dosage: 40 MILLIGRAM, ONCE A DAY
     Route: 065
  2. GABAPENTIN [Suspect]
     Active Substance: GABAPENTIN
     Indication: Product used for unknown indication
     Dosage: 600 MILLIGRAM, ONCE A DAY
     Route: 065
  3. GABAPENTIN [Suspect]
     Active Substance: GABAPENTIN
     Dosage: 300 MILLIGRAM
     Route: 065
  4. ACETAMINOPHEN [Suspect]
     Active Substance: ACETAMINOPHEN
     Indication: Product used for unknown indication
     Dosage: 3 GRAM, ONCE A DAY
     Route: 065
  5. PLUVICTO [Suspect]
     Active Substance: LUTETIUM LU-177 VIPIVOTIDE TETRAXETAN
     Indication: Hormone-refractory prostate cancer
     Dosage: UNK
     Route: 065
  6. SOTALOL [Concomitant]
     Active Substance: SOTALOL
     Indication: Product used for unknown indication
     Dosage: 320 MILLIGRAM, ONCE A DAY
     Route: 065
  7. ALLOPURINOL [Concomitant]
     Active Substance: ALLOPURINOL
     Indication: Product used for unknown indication
     Dosage: 300 MILLIGRAM, ONCE A DAY
     Route: 065
  8. METAMIZOLE [Concomitant]
     Active Substance: METAMIZOLE
     Indication: Product used for unknown indication
     Dosage: 1725 MILLIGRAM, ONCE A DAY (575 MG, TID (AS NEEDED)  )
     Route: 065
  9. DOCETAXEL [Concomitant]
     Active Substance: DOCETAXEL
     Indication: Hormone-refractory prostate cancer
     Dosage: 75 MILLIGRAM/SQ. METER (EVERY 21 DAYS)
     Route: 065
  10. PREDNISOLONE [Concomitant]
     Active Substance: PREDNISOLONE
     Indication: Product used for unknown indication
     Dosage: 10 MILLIGRAM, ONCE A DAY
     Route: 065
  11. ENZALUTAMIDE [Concomitant]
     Active Substance: ENZALUTAMIDE
     Indication: Product used for unknown indication
     Dosage: UNK
     Route: 065
  12. ABIRATERONE ACETATE [Concomitant]
     Active Substance: ABIRATERONE ACETATE
     Indication: Product used for unknown indication
     Dosage: 1000 MILLIGRAM, ONCE A DAY
     Route: 065
     Dates: start: 202104

REACTIONS (21)
  - Diverticulitis [Unknown]
  - Abscess intestinal [Unknown]
  - Hormone-refractory prostate cancer [Unknown]
  - Prostate cancer recurrent [Unknown]
  - Malignant neoplasm progression [Recovered/Resolved]
  - Metastases to bone [Unknown]
  - Bone lesion [Unknown]
  - Metastases to spleen [Unknown]
  - Metastases to lung [Unknown]
  - Metastases to spine [Unknown]
  - Infection [Unknown]
  - Lung consolidation [Unknown]
  - Disease complication [Unknown]
  - Haematotoxicity [Recovered/Resolved]
  - Thrombocytopenia [Recovered/Resolved]
  - Leukopenia [Recovered/Resolved]
  - Back pain [Recovering/Resolving]
  - Paraesthesia [Recovering/Resolving]
  - Gait disturbance [Recovering/Resolving]
  - Asthenia [Recovering/Resolving]
  - Treatment failure [Unknown]

NARRATIVE: CASE EVENT DATE: 20180101
